FAERS Safety Report 6568376-7 (Version None)
Quarter: 2010Q1

REPORT INFORMATION
  Report Type: 
  Country: None (occurrence: None)
  Receive Date: 20100203
  Receipt Date: 20100128
  Transmission Date: 20100710
  Serious: Yes (Hospitalization)
  Sender: FDA-Public Use
  Company Number: JP-SANOFI-AVENTIS-2009SA003971

PATIENT
  Age: 51 Year
  Sex: Male
  Weight: 80.6 kg

DRUGS (8)
  1. AMARYL [Suspect]
     Indication: TYPE 2 DIABETES MELLITUS
     Dosage: CCT 1MG/MORNING, 1 MG/EVENING
     Route: 048
     Dates: start: 20080904, end: 20090930
  2. PLACEBO [Suspect]
     Indication: TYPE 2 DIABETES MELLITUS
     Dosage: CCT 1 TABLET
     Dates: start: 20081128, end: 20090219
  3. BLINDED THERAPY [Suspect]
     Indication: TYPE 2 DIABETES MELLITUS
     Route: 048
     Dates: start: 20090220, end: 20090930
  4. ADALAT [Concomitant]
     Indication: HYPERTENSION
     Route: 048
     Dates: start: 20070628
  5. MICARDIS [Concomitant]
     Indication: HYPERTENSION
     Route: 048
     Dates: start: 20070628
  6. LIPIDIL [Concomitant]
     Indication: HYPERLIPIDAEMIA
     Route: 048
     Dates: start: 20070628
  7. ITAVASTATIN [Concomitant]
     Indication: HYPERLIPIDAEMIA
     Route: 048
     Dates: start: 20080221
  8. XALATAN [Concomitant]
     Indication: OCULAR HYPERTENSION
     Route: 031
     Dates: start: 20030924

REACTIONS (1)
  - ANGINA PECTORIS [None]
